FAERS Safety Report 6378668-2 (Version None)
Quarter: 2009Q3

REPORT INFORMATION
  Report Type: 
  Country: None (occurrence: None)
  Receive Date: 20090928
  Receipt Date: 20090915
  Transmission Date: 20100115
  Serious: Yes (Other)
  Sender: FDA-Public Use
  Company Number: US-ROCHE-656860

PATIENT
  Age: 11 Year
  Sex: Female

DRUGS (1)
  1. TAMIFLU [Suspect]
     Route: 048
     Dates: start: 20090911, end: 20090912

REACTIONS (3)
  - EYE SWELLING [None]
  - SNEEZING [None]
  - THROAT TIGHTNESS [None]
